FAERS Safety Report 16945424 (Version 1)
Quarter: 2019Q4

REPORT INFORMATION
  Report Type: Report from Study
  Country: US (occurrence: US)
  Receive Date: 20191022
  Receipt Date: 20191022
  Transmission Date: 20200122
  Serious: Yes (Hospitalization)
  Sender: FDA-Public Use
  Company Number: PHHO2009US01173

PATIENT
  Age: 72 Year
  Sex: Male
  Weight: 64.4 kg

DRUGS (1)
  1. FARYDAK [Suspect]
     Active Substance: PANOBINOSTAT
     Indication: MYELOFIBROSIS
     Dosage: 20 MG, QW3
     Route: 048
     Dates: start: 20081229, end: 20090105

REACTIONS (6)
  - Thrombocytopenia [Unknown]
  - Intra-abdominal haematoma [Unknown]
  - Abdominal pain upper [Unknown]
  - Palpitations [Unknown]
  - Atrial fibrillation [Unknown]
  - Tachycardia [Unknown]

NARRATIVE: CASE EVENT DATE: 20090103
